FAERS Safety Report 10203919 (Version 1)
Quarter: 2014Q2

REPORT INFORMATION
  Report Type: Spontaneous
  Country: US (occurrence: None)
  Receive Date: 20140523
  Receipt Date: 20140523
  Transmission Date: 20141212
  Serious: Yes (Other)
  Sender: FDA-Public Use
  Company Number: UNT-2014-000417

PATIENT
  Age: 37 Year
  Sex: Male
  Weight: 84.3 kg

DRUGS (3)
  1. REMODULIN [Suspect]
     Indication: PULMONARY ARTERIAL HYPERTENSION
     Route: 041
     Dates: start: 20130927
  2. LETAIRIS (AMBRISENTAN) [Concomitant]
  3. ADCIRCA (TADALAFIL) [Concomitant]

REACTIONS (3)
  - Spinal fracture [None]
  - Fall [None]
  - Spinal disorder [None]
